FAERS Safety Report 9529874 (Version 1)
Quarter: 2013Q3

REPORT INFORMATION
  Report Type: Spontaneous
  Country: US (occurrence: US)
  Receive Date: 20130917
  Receipt Date: 20130917
  Transmission Date: 20140515
  Serious: Yes (Other)
  Sender: FDA-Public Use
  Company Number: US-PFIZER INC-2013265667

PATIENT
  Age: 85 Year
  Sex: Female
  Weight: 67.12 kg

DRUGS (12)
  1. CHANTIX [Suspect]
     Indication: SMOKING CESSATION THERAPY
     Dosage: 0.5 MG, 1X/DAY
     Route: 048
     Dates: start: 20130909
  2. INSULIN [Concomitant]
     Indication: DIABETES MELLITUS
     Dosage: UNK
  3. GEMFIBROZIL [Concomitant]
     Dosage: UNK
  4. RANITIDINE [Concomitant]
     Dosage: UNK
  5. CARVEDILOL [Concomitant]
     Dosage: UNK
  6. ATORVASTATIN [Concomitant]
     Dosage: UNK
  7. CLOPIDOGREL [Concomitant]
     Dosage: UNK
  8. HYDROCHLOROTHIAZIDE [Concomitant]
     Dosage: UNK
  9. LISINOPRIL [Concomitant]
     Dosage: UNK
  10. BABY ASPIRIN [Concomitant]
     Dosage: UNK
  11. VITAMIN D3 [Concomitant]
     Dosage: UNK
  12. ZETIA [Concomitant]
     Dosage: UNK

REACTIONS (2)
  - Dizziness [Not Recovered/Not Resolved]
  - Impaired driving ability [Not Recovered/Not Resolved]
